FAERS Safety Report 7512147-1 (Version None)
Quarter: 2011Q2

REPORT INFORMATION
  Report Type: 
  Country: None (occurrence: None)
  Receive Date: 20110531
  Receipt Date: 20110524
  Transmission Date: 20111010
  Serious: Yes (Disabling)
  Sender: FDA-Public Use
  Company Number: FR-SANOFI-AVENTIS-2011SA010801

PATIENT
  Age: 78 Year
  Sex: Male
  Weight: 60 kg

DRUGS (5)
  1. MULTAQ [Suspect]
     Indication: ATRIAL FIBRILLATION
     Route: 048
     Dates: start: 20101222
  2. CRESTOR [Interacting]
     Route: 048
     Dates: start: 20101022, end: 20110417
  3. OLMESARTAN MEDOXOMIL [Concomitant]
     Route: 048
     Dates: start: 20101022
  4. ASPIRIN [Concomitant]
     Route: 048
     Dates: start: 20101022
  5. BISOPROLOL FUMARATE [Concomitant]
     Route: 048
     Dates: start: 20101022

REACTIONS (3)
  - ARTHRITIS [None]
  - DRUG INTERACTION [None]
  - MYALGIA [None]
